FAERS Safety Report 12780508 (Version 1)
Quarter: 2016Q3

REPORT INFORMATION
  Report Type: Report from Study
  Country: DE (occurrence: DE)
  Receive Date: 20160926
  Receipt Date: 20160926
  Transmission Date: 20161109
  Serious: Yes (Other)
  Sender: FDA-Public Use
  Company Number: DE-ABBVIE-16K-062-1731622-00

PATIENT
  Age: 45 Year

DRUGS (1)
  1. HUMIRA [Suspect]
     Active Substance: ADALIMUMAB
     Indication: RHEUMATOID ARTHRITIS
     Route: 058
     Dates: start: 20121108

REACTIONS (4)
  - Foot deformity [Unknown]
  - Anaemia [Unknown]
  - Menorrhagia [Recovered/Resolved]
  - Uterine polyp [Unknown]

NARRATIVE: CASE EVENT DATE: 20140920
